FAERS Safety Report 25116952 (Version 1)
Quarter: 2025Q1

REPORT INFORMATION
  Report Type: Spontaneous
  Country: US (occurrence: US)
  Receive Date: 20250325
  Receipt Date: 20250325
  Transmission Date: 20250409
  Serious: Yes (Death, Life-Threatening, Disabling, Other)
  Sender: CHATTEM
  Company Number: US-OPELLA-2025OHG007821

PATIENT
  Sex: Male

DRUGS (1)
  1. GOLD BOND ORIGINAL STRENGTH [Suspect]
     Active Substance: MENTHOL
     Indication: Product used for unknown indication

REACTIONS (6)
  - Pleural mesothelioma [Fatal]
  - Exposure to chemical pollution [Fatal]
  - Shock [Fatal]
  - Haemorrhage [Fatal]
  - Pulmonary necrosis [Fatal]
  - Sepsis [Fatal]

NARRATIVE: CASE EVENT DATE: 20241023
